FAERS Safety Report 6221728-7 (Version None)
Quarter: 2009Q2

REPORT INFORMATION
  Report Type: 
  Country: None (occurrence: None)
  Receive Date: 20090608
  Receipt Date: 20090527
  Transmission Date: 20091009
  Serious: Yes (Other)
  Sender: FDA-Public Use
  Company Number: 2009AP002238

PATIENT
  Age: 7 Year

DRUGS (3)
  1. CYCLOSPORINE [Suspect]
     Indication: IMMUNOSUPPRESSION
  2. DEXAMETHASONE [Suspect]
     Indication: IMMUNOSUPPRESSION
  3. ETOPOSIDE [Concomitant]

REACTIONS (5)
  - DRUG INTERACTION [None]
  - HYPERTENSION [None]
  - MENTAL STATUS CHANGES [None]
  - NEUROTOXICITY [None]
  - SOMNOLENCE [None]
